FAERS Safety Report 25425695 (Version 1)
Quarter: 2025Q2

REPORT INFORMATION
  Report Type: Spontaneous
  Country: GB (occurrence: GB)
  Receive Date: 20250611
  Receipt Date: 20250611
  Transmission Date: 20250717
  Serious: No
  Sender: ALKEM
  Company Number: None

PATIENT
  Age: 62 Year
  Sex: Male

DRUGS (1)
  1. VARENICLINE [Suspect]
     Active Substance: VARENICLINE
     Indication: Product used for unknown indication
     Route: 065
     Dates: start: 20250303, end: 20250325

REACTIONS (1)
  - Blister [Recovering/Resolving]

NARRATIVE: CASE EVENT DATE: 20250321
